FAERS Safety Report 18099358 (Version 9)
Quarter: 2022Q4

REPORT INFORMATION
  Report Type: Spontaneous
  Country: US (occurrence: US)
  Receive Date: 20200731
  Receipt Date: 20221110
  Transmission Date: 20230113
  Serious: Yes (Other)
  Sender: FDA-Public Use
  Company Number: US-PFIZER INC-2020287964

PATIENT
  Age: 77 Year
  Sex: Female

DRUGS (1)
  1. XELJANZ XR [Suspect]
     Active Substance: TOFACITINIB CITRATE
     Indication: Arthritis
     Dosage: 11 MG, DAILY

REACTIONS (14)
  - Ulcer haemorrhage [Unknown]
  - Pulmonary artery aneurysm [Unknown]
  - Cerebrovascular accident [Unknown]
  - Hernia [Unknown]
  - Aortic aneurysm [Unknown]
  - Kidney infection [Unknown]
  - Tooth fracture [Unknown]
  - Hypersensitivity [Unknown]
  - Malaise [Unknown]
  - Arthropathy [Unknown]
  - Memory impairment [Unknown]
  - Herpes zoster [Unknown]
  - Gait inability [Unknown]
  - Wrong product administered [Unknown]

NARRATIVE: CASE EVENT DATE: 20200101
